FAERS Safety Report 17558104 (Version 7)
Quarter: 2020Q3

REPORT INFORMATION
  Report Type: Spontaneous
  Country: US (occurrence: US)
  Receive Date: 20200318
  Receipt Date: 20200730
  Transmission Date: 20201102
  Serious: Yes (Hospitalization)
  Sender: FDA-Public Use
  Company Number: NVSC2020US076746

PATIENT
  Sex: Male

DRUGS (4)
  1. LENVIMA [Suspect]
     Active Substance: LENVATINIB
     Dosage: 18 MG, QD
     Route: 048
     Dates: start: 20200305
  2. LENVIMA [Suspect]
     Active Substance: LENVATINIB
     Dosage: 18 MG, QD
     Route: 048
     Dates: start: 20200305
  3. AFINITOR [Suspect]
     Active Substance: EVEROLIMUS
     Indication: KAPOSI^S SARCOMA
     Dosage: 5 MG, QD
     Route: 065
     Dates: start: 20200305
  4. LENVIMA [Suspect]
     Active Substance: LENVATINIB
     Indication: KAPOSI^S SARCOMA
     Dosage: 18 MG, QD
     Route: 048
     Dates: start: 20200305

REACTIONS (10)
  - Pain [Not Recovered/Not Resolved]
  - Asthenia [Recovered/Resolved]
  - Fatigue [Recovered/Resolved]
  - Nausea [Recovered/Resolved]
  - Constipation [Not Recovered/Not Resolved]
  - Dehydration [Not Recovered/Not Resolved]
  - Decreased appetite [Recovering/Resolving]
  - Product use in unapproved indication [Unknown]
  - Infection [Recovered/Resolved]
  - Ageusia [Not Recovered/Not Resolved]
